FAERS Safety Report 25204767 (Version 1)
Quarter: 2025Q2

REPORT INFORMATION
  Report Type: Spontaneous
  Country: ES (occurrence: ES)
  Receive Date: 20250416
  Receipt Date: 20250416
  Transmission Date: 20250716
  Serious: Yes (Other)
  Sender: ROCHE
  Company Number: None

PATIENT
  Age: 60 Year
  Sex: Female

DRUGS (4)
  1. ADO-TRASTUZUMAB EMTANSINE [Interacting]
     Active Substance: ADO-TRASTUZUMAB EMTANSINE
     Indication: Breast neoplasm
     Route: 042
     Dates: start: 20240913, end: 20250121
  2. PHESGO [Interacting]
     Active Substance: HYALURONIDASE-ZZXF\PERTUZUMAB\TRASTUZUMAB
     Indication: Breast neoplasm
     Route: 042
     Dates: start: 20240307, end: 20240703
  3. PACLITAXEL [Interacting]
     Active Substance: PACLITAXEL
     Indication: Breast neoplasm
     Route: 042
     Dates: start: 20240417, end: 20240618
  4. CARBOPLATIN [Interacting]
     Active Substance: CARBOPLATIN
     Indication: Breast neoplasm
     Route: 042
     Dates: start: 20240307, end: 20240618

REACTIONS (2)
  - Neurotoxicity [Not Recovered/Not Resolved]
  - Drug interaction [Unknown]

NARRATIVE: CASE EVENT DATE: 20241118
